FAERS Safety Report 24395819 (Version 1)
Quarter: 2024Q4

REPORT INFORMATION
  Report Type: Spontaneous
  Country: US (occurrence: None)
  Receive Date: 20241003
  Receipt Date: 20241003
  Transmission Date: 20250115
  Serious: No
  Sender: Public
  Company Number: None

PATIENT
  Age: 67 Year
  Sex: Male

DRUGS (4)
  1. CABENUVA [Suspect]
     Active Substance: CABOTEGRAVIR\RILPIVIRINE
     Indication: HIV infection
     Dosage: OTHER QUANTITY : 600-900 MG;?OTHER FREQUENCY : ONCE EVERY 8 WEEKS;?
     Route: 030
     Dates: start: 20230718, end: 20241003
  2. ALLUPURINOL [Concomitant]
  3. LANTUS [Concomitant]
     Active Substance: INSULIN GLARGINE
  4. JANUVIA [Concomitant]

REACTIONS (1)
  - Injection site mass [None]

NARRATIVE: CASE EVENT DATE: 20241003
